FAERS Safety Report 10490321 (Version 1)
Quarter: 2014Q4

REPORT INFORMATION
  Report Type: Report from Study
  Country: MX (occurrence: MX)
  Receive Date: 20141002
  Receipt Date: 20141002
  Transmission Date: 20150528
  Serious: Yes (Other)
  Sender: FDA-Public Use
  Company Number: PHHY2014MX129008

PATIENT
  Age: 46 Year
  Sex: Male

DRUGS (1)
  1. CO-DIOVAN [Suspect]
     Active Substance: HYDROCHLOROTHIAZIDE\VALSARTAN
     Indication: HYPERTENSION
     Dosage: 1 DF, DAILY
     Route: 048
     Dates: start: 20140926

REACTIONS (2)
  - Inguinal hernia [Not Recovered/Not Resolved]
  - Diaphragmatic hernia [Not Recovered/Not Resolved]
